FAERS Safety Report 8411959 (Version 2)
Quarter: 2014Q2

REPORT INFORMATION
  Report Type: Spontaneous
  Country: DE (occurrence: DE)
  Receive Date: 20120217
  Receipt Date: 20140522
  Transmission Date: 20141212
  Serious: Yes (Other)
  Sender: FDA-Public Use
  Company Number: PHHY2012DE013277

PATIENT
  Sex: Female

DRUGS (4)
  1. CICLOSPORIN [Suspect]
  2. MYCOPHENOLATE MOFETIL [Suspect]
     Indication: LIVER TRANSPLANT
     Dosage: 1 G/DAY
  3. PREDNISONE [Suspect]
  4. URSODEOXYCHOLIC ACID [Suspect]

REACTIONS (2)
  - Premature labour [Unknown]
  - Maternal exposure during pregnancy [Unknown]
